FAERS Safety Report 6217661-7 (Version None)
Quarter: 2009Q2

REPORT INFORMATION
  Report Type: 
  Country: None (occurrence: None)
  Receive Date: 20090608
  Receipt Date: 20090526
  Transmission Date: 20091009
  Serious: Yes (Other)
  Sender: FDA-Public Use
  Company Number: US-PFIZER INC-2009218988

PATIENT
  Sex: Female
  Weight: 72.574 kg

DRUGS (6)
  1. CELEBREX [Suspect]
     Indication: ARTHRITIS
     Dosage: 200 MG, 1X/DAY
  2. DETROL LA [Suspect]
     Indication: BLADDER DISORDER
     Dosage: 4 MG, 1X/DAY
  3. LOSARTAN [Concomitant]
     Dosage: UNK
  4. MONTELUKAST [Concomitant]
     Dosage: UNK
  5. ALISKIREN [Concomitant]
     Dosage: UNK
  6. ROSUVASTATIN [Concomitant]
     Dosage: UNK

REACTIONS (2)
  - BLADDER DISORDER [None]
  - GLAUCOMA [None]
